FAERS Safety Report 6737096-8 (Version None)
Quarter: 2010Q2

REPORT INFORMATION
  Report Type: 
  Country: None (occurrence: None)
  Receive Date: 20100524
  Receipt Date: 20100519
  Transmission Date: 20101027
  Serious: Yes (Hospitalization)
  Sender: FDA-Public Use
  Company Number: US-BIOGENIDEC-2010BI011238

PATIENT
  Age: 55 Year
  Sex: Female

DRUGS (1)
  1. TYSABRI [Suspect]
     Indication: MULTIPLE SCLEROSIS
     Route: 042
     Dates: start: 20100304

REACTIONS (7)
  - APHASIA [None]
  - COMMUNICATION DISORDER [None]
  - CONFUSIONAL STATE [None]
  - DEPRESSION [None]
  - DISORIENTATION [None]
  - MULTIPLE SCLEROSIS RELAPSE [None]
  - SPEECH DISORDER [None]
